FAERS Safety Report 13458246 (Version 1)
Quarter: 2017Q2

REPORT INFORMATION
  Report Type: Spontaneous
  Country: GB (occurrence: GB)
  Receive Date: 20170419
  Receipt Date: 20170419
  Transmission Date: 20170830
  Serious: Yes (Other)
  Sender: FDA-Public Use
  Company Number: GB-ACCORD-050213

PATIENT
  Age: 32 Year
  Sex: Female
  Weight: 63.5 kg

DRUGS (1)
  1. SERTRALINE [Suspect]
     Active Substance: SERTRALINE HYDROCHLORIDE
     Indication: ANXIETY DISORDER
     Route: 048
     Dates: start: 20160904, end: 20170228

REACTIONS (15)
  - Sleep terror [Not Recovered/Not Resolved]
  - Dizziness [Recovering/Resolving]
  - Anxiety [Not Recovered/Not Resolved]
  - Withdrawal syndrome [Not Recovered/Not Resolved]
  - Muscle spasms [Not Recovered/Not Resolved]
  - Visual impairment [Not Recovered/Not Resolved]
  - Paraesthesia [Recovering/Resolving]
  - Allergic colitis [Not Recovered/Not Resolved]
  - Nausea [Recovering/Resolving]
  - Drug withdrawal headache [Not Recovered/Not Resolved]
  - Migraine with aura [Not Recovered/Not Resolved]
  - Abnormal dreams [Not Recovered/Not Resolved]
  - Photophobia [Not Recovered/Not Resolved]
  - Hyperhidrosis [Recovering/Resolving]
  - Influenza like illness [Recovering/Resolving]

NARRATIVE: CASE EVENT DATE: 201702
